FAERS Safety Report 19381639 (Version 1)
Quarter: 2021Q2

REPORT INFORMATION
  Report Type: Spontaneous
  Country: US (occurrence: US)
  Receive Date: 20210607
  Receipt Date: 20210607
  Transmission Date: 20210717
  Serious: Yes (Other)
  Sender: FDA-Public Use
  Company Number: US-BTGSP-US-BTGSP-21-0076

PATIENT

DRUGS (2)
  1. CROFAB [Suspect]
     Active Substance: CROTALIDAE POLYVALENT IMMUNE FAB (OVINE)
     Indication: SNAKE BITE
     Dosage: UNK
     Route: 065
  2. CROTALIDAE POLYVALENT IMMUNE FAB [Concomitant]
     Indication: SNAKE BITE
     Dosage: UNK
     Route: 065

REACTIONS (2)
  - Necrosis [Not Recovered/Not Resolved]
  - Inappropriate schedule of product administration [Unknown]
